FAERS Safety Report 19769878 (Version 1)
Quarter: 2021Q3

REPORT INFORMATION
  Report Type: Spontaneous
  Country: CA (occurrence: CA)
  Receive Date: 20210831
  Receipt Date: 20210831
  Transmission Date: 20211014
  Serious: Yes (Other)
  Sender: FDA-Public Use
  Company Number: CA-TEVA-2021-CA-1947140

PATIENT
  Age: 60 Year
  Sex: Female

DRUGS (2)
  1. CYTARABINE INJECTION [Concomitant]
     Active Substance: CYTARABINE
  2. ETOPOSIDE. [Suspect]
     Active Substance: ETOPOSIDE
     Route: 042

REACTIONS (3)
  - Pyrexia [Unknown]
  - Infusion related reaction [Unknown]
  - Chills [Unknown]
